FAERS Safety Report 5133928-8 (Version None)
Quarter: 2006Q4

REPORT INFORMATION
  Report Type: 
  Country: None (occurrence: None)
  Receive Date: 20061023
  Receipt Date: 20061023
  Transmission Date: 20070319
  Serious: Yes (Hospitalization)
  Sender: FDA-Public Use
  Company Number: None

PATIENT
  Age: 76 Year
  Sex: Male
  Weight: 78 kg

DRUGS (2)
  1. VANCOMYCIN [Suspect]
     Indication: STAPHYLOCOCCAL INFECTION
     Dosage: 1000MG  Q12H   IV
     Route: 042
     Dates: start: 20060304, end: 20060314
  2. GATIFLOXICIN [Suspect]
     Indication: INFECTION
     Dosage: 400MG  Q24H  IV
     Route: 042
     Dates: start: 20060227, end: 20060308

REACTIONS (1)
  - NEPHRITIS INTERSTITIAL [None]
